FAERS Safety Report 15046199 (Version 2)
Quarter: 2018Q3

REPORT INFORMATION
  Report Type: Spontaneous
  Country: NL (occurrence: NL)
  Receive Date: 20180621
  Receipt Date: 20180801
  Transmission Date: 20181010
  Serious: Yes (Congenital Anomaly, Other)
  Sender: FDA-Public Use
  Company Number: PHHY2018NL026908

PATIENT

DRUGS (1)
  1. DEXAMETHASONE. [Suspect]
     Active Substance: DEXAMETHASONE
     Indication: FOETAL EXPOSURE DURING PREGNANCY
     Dosage: 0.5 MG, TID , 1ST TRIMESTER
     Route: 064

REACTIONS (6)
  - Virilism [Recovering/Resolving]
  - Cognitive disorder [Unknown]
  - Memory impairment [Unknown]
  - Adrenogenital syndrome [Recovering/Resolving]
  - Cleft lip and palate [Unknown]
  - Foetal exposure during pregnancy [Unknown]
